FAERS Safety Report 13325210 (Version 4)
Quarter: 2017Q2

REPORT INFORMATION
  Report Type: Report from Study
  Country: US (occurrence: US)
  Receive Date: 20170310
  Receipt Date: 20170620
  Transmission Date: 20170830
  Serious: Yes (Hospitalization)
  Sender: FDA-Public Use
  Company Number: US-ACTELION-A-US2017-150999

PATIENT
  Age: 83 Year
  Sex: Female
  Weight: 74.83 kg

DRUGS (5)
  1. UPTRAVI [Suspect]
     Active Substance: SELEXIPAG
     Indication: PULMONARY ARTERIAL HYPERTENSION
     Dosage: 1600 MCG, BID
     Route: 048
  2. SILDENAFIL CITRATE. [Concomitant]
     Active Substance: SILDENAFIL CITRATE
  3. LETAIRIS [Concomitant]
     Active Substance: AMBRISENTAN
  4. DILTIAZEM. [Concomitant]
     Active Substance: DILTIAZEM
  5. ELIQUIS [Concomitant]
     Active Substance: APIXABAN

REACTIONS (13)
  - Atrial fibrillation [Unknown]
  - Hyporeflexia [Unknown]
  - Dyspnoea [Unknown]
  - Pneumonia [Unknown]
  - Dysphagia [Unknown]
  - Diarrhoea [Recovered/Resolved]
  - Fatigue [Unknown]
  - Cough [Unknown]
  - Aspiration [Unknown]
  - Urinary tract infection [Unknown]
  - Haemoptysis [Unknown]
  - Cystitis [Unknown]
  - Anaemia [Unknown]

NARRATIVE: CASE EVENT DATE: 20170403
